FAERS Safety Report 5397249-0 (Version None)
Quarter: 2007Q3

REPORT INFORMATION
  Report Type: 
  Country: None (occurrence: None)
  Receive Date: 20070725
  Receipt Date: 20070713
  Transmission Date: 20080115
  Serious: Yes (Other)
  Sender: FDA-Public Use
  Company Number: NL-PFIZER INC-2007059387

PATIENT
  Age: 68 Year
  Sex: Female
  Weight: 109 kg

DRUGS (4)
  1. CARDURA [Suspect]
     Indication: HYPERTENSION
     Route: 048
  2. NEBILET [Suspect]
     Route: 048
  3. IRBESARTAN [Suspect]
     Route: 048
  4. ALPRAZOLAM [Concomitant]
     Route: 048

REACTIONS (5)
  - ASTHENIA [None]
  - BLOOD PRESSURE INCREASED [None]
  - FATIGUE [None]
  - HYPOTHALAMO-PITUITARY DISORDER [None]
  - STRESS [None]
